FAERS Safety Report 9183823 (Version 1)
Quarter: 2013Q1

REPORT INFORMATION
  Report Type: Spontaneous
  Country: US (occurrence: US)
  Receive Date: 20130322
  Receipt Date: 20130322
  Transmission Date: 20140127
  Serious: No
  Sender: FDA-Public Use
  Company Number: US-BRISTOL-MYERS SQUIBB COMPANY-16625246

PATIENT
  Age: 59 Year
  Sex: Male
  Weight: 70.29 kg

DRUGS (2)
  1. ERBITUX [Suspect]
     Indication: COLORECTAL CANCER
     Dosage: 1DF= DOUBLE DOSE. RECENT DOSE 22MAY12
  2. ERBITUX [Suspect]
     Indication: BLADDER MASS
     Dosage: 1DF= DOUBLE DOSE. RECENT DOSE 22MAY12

REACTIONS (2)
  - Dry skin [Unknown]
  - Joint crepitation [Unknown]
